FAERS Safety Report 12636984 (Version 3)
Quarter: 2017Q1

REPORT INFORMATION
  Report Type: Spontaneous
  Country: DE (occurrence: DE)
  Receive Date: 20160809
  Receipt Date: 20170224
  Transmission Date: 20170428
  Serious: Yes (Other)
  Sender: FDA-Public Use
  Company Number: DE-ROCHE-1807673

PATIENT
  Age: 56 Year
  Sex: Male
  Weight: 86.5 kg

DRUGS (18)
  1. RITUXIMAB [Suspect]
     Active Substance: RITUXIMAB
     Route: 058
     Dates: start: 20141013, end: 20141013
  2. CLINDA-SAAR [Concomitant]
     Indication: LARYNGITIS
     Route: 048
     Dates: start: 20140321, end: 20140329
  3. BENURON [Concomitant]
     Route: 048
     Dates: start: 20141212, end: 20161230
  4. RITUXIMAB [Suspect]
     Active Substance: RITUXIMAB
     Indication: B-CELL LYMPHOMA
     Dosage: 375 MG/M2 (AS PER PROTOCOL)
     Route: 042
     Dates: start: 20140331, end: 20140331
  5. RITUXIMAB [Suspect]
     Active Substance: RITUXIMAB
     Route: 042
     Dates: start: 20140428, end: 20140428
  6. ACICLOVIR [Concomitant]
     Active Substance: ACYCLOVIR
     Route: 048
     Dates: start: 20140331, end: 20150207
  7. FENISTIL (GERMANY) [Concomitant]
     Route: 048
     Dates: start: 20140721, end: 20141013
  8. FORTECORTIN [Concomitant]
     Active Substance: DEXAMETHASONE
     Dosage: DAY 1 OF E4ACH CYCLE PRIOR TO CHEMO
     Route: 042
     Dates: start: 20140331, end: 20141014
  9. RITUXIMAB [Suspect]
     Active Substance: RITUXIMAB
     Route: 042
     Dates: start: 20140623, end: 20140623
  10. COTRIM FORTE [Concomitant]
     Active Substance: SULFAMETHOXAZOLE\TRIMETHOPRIM
     Route: 048
     Dates: start: 20140331, end: 20150207
  11. RITUXIMAB [Suspect]
     Active Substance: RITUXIMAB
     Route: 058
     Dates: start: 20140818, end: 20140818
  12. RITUXIMAB [Suspect]
     Active Substance: RITUXIMAB
     Route: 042
     Dates: start: 20140526, end: 20140526
  13. FENISTIL (GERMANY) [Concomitant]
     Route: 048
     Dates: start: 20141212, end: 20160630
  14. RITUXIMAB [Suspect]
     Active Substance: RITUXIMAB
     Indication: B-CELL LYMPHOMA
     Dosage: MOST RECENT DOSE PRIOR TO SAE: 29/JUN/2016
     Route: 058
     Dates: start: 20140721, end: 20140721
  15. BENURON [Concomitant]
     Route: 065
     Dates: start: 20140331, end: 20141013
  16. RITUXIMAB [Suspect]
     Active Substance: RITUXIMAB
     Dosage: MAINTENANCE DOSE
     Route: 058
     Dates: start: 20141212, end: 20160630
  17. RITUXIMAB [Suspect]
     Active Substance: RITUXIMAB
     Route: 058
     Dates: start: 20140915, end: 20140915
  18. RAMIPRIL. [Concomitant]
     Active Substance: RAMIPRIL

REACTIONS (1)
  - Autoimmune colitis [Recovering/Resolving]

NARRATIVE: CASE EVENT DATE: 20160721
